FAERS Safety Report 4487582-9 (Version None)
Quarter: 2004Q4

REPORT INFORMATION
  Report Type: 
  Country: None (occurrence: None)
  Receive Date: 20041027
  Receipt Date: 20041027
  Transmission Date: 20050328
  Serious: Yes (Life-Threatening, Hospitalization)
  Sender: FDA-Public Use
  Company Number: None

PATIENT
  Age: 64 Year
  Sex: Male

DRUGS (1)
  1. NIFEREX   150MG [Suspect]
     Indication: ANAEMIA
     Dosage: 150MG   QD   ORAL
     Route: 048
     Dates: start: 20030801, end: 20040913

REACTIONS (4)
  - ASTHENIA [None]
  - DIZZINESS [None]
  - FAECES DISCOLOURED [None]
  - UPPER GASTROINTESTINAL HAEMORRHAGE [None]
